FAERS Safety Report 15808978 (Version 2)
Quarter: 2019Q1

REPORT INFORMATION
  Report Type: Spontaneous
  Country: AU (occurrence: AU)
  Receive Date: 20190110
  Receipt Date: 20190117
  Transmission Date: 20190417
  Serious: No
  Sender: FDA-Public Use
  Company Number: PHHY2019AU004089

PATIENT
  Sex: Male

DRUGS (2)
  1. LAMISIL [Suspect]
     Active Substance: TERBINAFINE HYDROCHLORIDE
     Indication: BODY TINEA
  2. LAMISIL [Suspect]
     Active Substance: TERBINAFINE HYDROCHLORIDE
     Indication: TINEA INFECTION
     Dosage: UNK
     Route: 065

REACTIONS (8)
  - Tinea infection [Unknown]
  - Disease recurrence [Unknown]
  - Tongue disorder [Recovering/Resolving]
  - Body tinea [Unknown]
  - Therapeutic response unexpected [Unknown]
  - Psoriasis [Unknown]
  - Sinus disorder [Recovering/Resolving]
  - Chest discomfort [Recovering/Resolving]
